FAERS Safety Report 12355649 (Version 1)
Quarter: 2016Q2

REPORT INFORMATION
  Report Type: Spontaneous
  Country: US (occurrence: None)
  Receive Date: 20160510
  Receipt Date: 20160510
  Transmission Date: 20160815
  Serious: Yes (Other)
  Sender: FDA-Public Use
  Company Number: None

PATIENT
  Age: 55 Year
  Sex: Male
  Weight: 54.43 kg

DRUGS (2)
  1. ACTIVATED CHARCOAL [Concomitant]
     Active Substance: ACTIVATED CHARCOAL
  2. ASTHMANEFRIN [Suspect]
     Active Substance: RACEPINEPHRINE HYDROCHLORIDE
     Indication: ASTHMA
     Dosage: 1 INHALATION APPLIED TO A SURFACE, USUALLY THE SKIN
     Dates: start: 20160502, end: 20160502

REACTIONS (5)
  - Skin reaction [None]
  - Back pain [None]
  - Expired product administered [None]
  - Incorrect route of drug administration [None]
  - Flank pain [None]

NARRATIVE: CASE EVENT DATE: 20160502
